FAERS Safety Report 6264950-6 (Version None)
Quarter: 2009Q3

REPORT INFORMATION
  Report Type: 
  Country: None (occurrence: None)
  Receive Date: 20090709
  Receipt Date: 20090709
  Transmission Date: 20100115
  Serious: No
  Sender: FDA-Public Use
  Company Number: None

PATIENT
  Age: 84 Year
  Sex: Male
  Weight: 78.0187 kg

DRUGS (10)
  1. TRICOR [Suspect]
     Indication: BLOOD CHOLESTEROL INCREASED
     Dosage: 145MGM QD PO SEE NARRATIVE FOR DATES USED
     Route: 048
  2. DIOVAN [Concomitant]
  3. PLAVIX [Concomitant]
  4. PRAVASTATIN [Concomitant]
  5. METOPROLOL SUCCINATE [Concomitant]
  6. NEXIUM [Concomitant]
  7. ALLOPURINOL [Concomitant]
  8. CALCITRIOL [Concomitant]
  9. ASPIRIN [Concomitant]
  10. CALCIUM [Concomitant]

REACTIONS (12)
  - AGGRESSION [None]
  - ASTHENIA [None]
  - DEHYDRATION [None]
  - FALL [None]
  - GASTROENTERITIS [None]
  - HEADACHE [None]
  - MOVEMENT DISORDER [None]
  - MUSCULOSKELETAL DISCOMFORT [None]
  - MYALGIA [None]
  - PAIN IN EXTREMITY [None]
  - POOR QUALITY SLEEP [None]
  - SLEEP TALKING [None]
